FAERS Safety Report 21995882 (Version 1)
Quarter: 2023Q1

REPORT INFORMATION
  Report Type: Report from Study
  Country: IN (occurrence: IN)
  Receive Date: 20230215
  Receipt Date: 20230215
  Transmission Date: 20230417
  Serious: Yes (Other)
  Sender: FDA-Public Use
  Company Number: IN-002147023-PHHY2018IN118676

PATIENT
  Age: 49 Year
  Sex: Female
  Weight: 59 kg

DRUGS (7)
  1. CERITINIB [Suspect]
     Active Substance: CERITINIB
     Indication: Non-small cell lung cancer
     Dosage: 300 MG, QD
     Route: 048
     Dates: start: 20180528
  2. CERITINIB [Suspect]
     Active Substance: CERITINIB
     Dosage: 450 MG, QD
     Route: 065
     Dates: start: 20180608, end: 20191011
  3. CERITINIB [Suspect]
     Active Substance: CERITINIB
     Dosage: 450 MG, QD
     Route: 048
     Dates: start: 20180628, end: 20180806
  4. CERITINIB [Suspect]
     Active Substance: CERITINIB
     Dosage: 300 MG, QD
     Route: 048
     Dates: start: 20180817
  5. CERITINIB [Suspect]
     Active Substance: CERITINIB
     Dosage: 300 MG, QD
     Route: 048
     Dates: start: 202202
  6. CERITINIB [Suspect]
     Active Substance: CERITINIB
     Dosage: 300 MG, QD
     Route: 048
     Dates: start: 202206
  7. CERITINIB [Suspect]
     Active Substance: CERITINIB
     Dosage: 300 MG, QD
     Route: 048
     Dates: start: 20230201

REACTIONS (5)
  - Haemoptysis [Unknown]
  - Cough [Unknown]
  - Non-small cell lung cancer [Unknown]
  - Malignant neoplasm progression [Unknown]
  - Vomiting [Unknown]

NARRATIVE: CASE EVENT DATE: 20180807
